FAERS Safety Report 8821570 (Version 5)
Quarter: 2013Q3

REPORT INFORMATION
  Report Type: Report from Study
  Country: US (occurrence: US)
  Receive Date: 20121002
  Receipt Date: 20130812
  Transmission Date: 20140515
  Serious: No
  Sender: FDA-Public Use
  Company Number: US-VERTEX PHARMACEUTICAL INC.-2012-020761

PATIENT
  Age: 56 Year
  Sex: Female

DRUGS (3)
  1. VX-950 (TELAPREVIR) [Suspect]
     Indication: HEPATITIS C
     Dosage: UNK
     Route: 048
     Dates: start: 20120715, end: 20121008
  2. RIBAVIRIN [Suspect]
     Indication: HEPATITIS C
     Dosage: UNK
     Dates: start: 20120715, end: 20121229
  3. PEGASYS [Suspect]
     Indication: HEPATITIS C
     Dosage: UNK
     Dates: start: 20120715, end: 20121223

REACTIONS (7)
  - Neuralgia [Recovered/Resolved]
  - Gastrooesophageal reflux disease [Not Recovered/Not Resolved]
  - Asthenia [Not Recovered/Not Resolved]
  - Dry skin [Not Recovered/Not Resolved]
  - Anaemia [Not Recovered/Not Resolved]
  - Pruritus [Recovered/Resolved]
  - Drug ineffective [Not Recovered/Not Resolved]
